FAERS Safety Report 8687609 (Version 2)
Quarter: 2012Q4

REPORT INFORMATION
  Report Type: 
  Country: US (occurrence: US)
  Receive Date: 20120727
  Receipt Date: 20121207
  Transmission Date: 20130627
  Serious: No
  Sender: FDA-Public Use
  Company Number: US-009507513-1207USA007972

PATIENT
  Age: 55 Year
  Sex: Male
  Weight: 70.3 kg

DRUGS (5)
  1. CLARITIN [Suspect]
     Indication: SEASONAL ALLERGY
     Dosage: 10 mg, Unknown
     Route: 048
     Dates: start: 20120610, end: 20120611
  2. CAFERGOT [Concomitant]
     Indication: CLUSTER HEADACHE
     Dosage: UNK, Unknown
  3. DILAUDID [Concomitant]
     Indication: CLUSTER HEADACHE
     Dosage: UNK, Unknown
  4. MAXALT [Concomitant]
     Indication: CLUSTER HEADACHE
     Dosage: UNK, Unknown
  5. PREDNISONE [Concomitant]
     Indication: VIITH NERVE PARALYSIS
     Dosage: UNK, Unknown

REACTIONS (1)
  - Therapeutic product ineffective [Unknown]
